FAERS Safety Report 5273781-5 (Version None)
Quarter: 2007Q1

REPORT INFORMATION
  Report Type: 
  Country: None (occurrence: None)
  Receive Date: 20070323
  Receipt Date: 20070319
  Transmission Date: 20070707
  Serious: Yes (Death, Hospitalization)
  Sender: FDA-Public Use
  Company Number: DE-AVENTIS-200710242DE

PATIENT
  Age: 56 Year
  Sex: Female
  Weight: 80 kg

DRUGS (7)
  1. ARAVA [Suspect]
     Route: 048
     Dates: start: 20060919, end: 20061120
  2. ARAVA [Suspect]
     Route: 048
     Dates: start: 20060919, end: 20061120
  3. QUANTALAN [Concomitant]
     Dosage: DOSE: NOT REPORTED
  4. QUENSYL [Concomitant]
     Indication: ARTHRITIS
     Route: 048
  5. CORTICOSTEROIDS [Concomitant]
     Indication: ARTHRITIS
     Dosage: DOSE: NOT REPORTED
  6. PREDNISON [Concomitant]
     Indication: ARTHRITIS
     Dosage: DOSE: NOT REPORTED
     Route: 048
     Dates: end: 20060101
  7. PREDNISON [Concomitant]
     Route: 048
     Dates: start: 20060101

REACTIONS (4)
  - ASTHENIA [None]
  - DEATH [None]
  - LEUKOPENIA [None]
  - THROMBOCYTOPENIA [None]
